FAERS Safety Report 11871694 (Version 1)
Quarter: 2015Q4

REPORT INFORMATION
  Report Type: Spontaneous
  Country: FR (occurrence: FR)
  Receive Date: 20151228
  Receipt Date: 20151228
  Transmission Date: 20160305
  Serious: Yes (Hospitalization)
  Sender: FDA-Public Use
  Company Number: FR-SA-2015SA215057

PATIENT
  Age: 34 Year
  Sex: Female

DRUGS (15)
  1. HYDROXYZINE HYDROCHLORIDE. [Concomitant]
     Active Substance: HYDROXYZINE HYDROCHLORIDE
     Route: 065
  2. CARLYTENE [Concomitant]
  3. AUGMENTIN [Suspect]
     Active Substance: AMOXICILLIN\CLAVULANATE POTASSIUM
     Indication: BRONCHITIS
     Route: 048
     Dates: start: 20150710
  4. SPIRONOLACTONE. [Concomitant]
     Active Substance: SPIRONOLACTONE
     Route: 065
  5. LASILIX [Concomitant]
     Active Substance: FUROSEMIDE
     Dosage: 40 MG, TABLET
     Route: 048
  6. PREVISCAN [Concomitant]
     Active Substance: FLUINDIONE
     Dosage: 20 MG, TABLET
     Route: 048
  7. SPIRONOLACTONE. [Suspect]
     Active Substance: SPIRONOLACTONE
     Route: 048
  8. BISOCE [Concomitant]
     Active Substance: BISOPROLOL
     Dosage: 10 MG FILM-COATED TABLET
     Route: 048
  9. KETEK [Suspect]
     Active Substance: TELITHROMYCIN
     Indication: BRONCHITIS
     Route: 048
     Dates: start: 20150731
  10. AUGMENTIN [Suspect]
     Active Substance: AMOXICILLIN\CLAVULANATE POTASSIUM
     Indication: BRONCHITIS
     Route: 048
     Dates: start: 20150703
  11. ALPRAZOLAM. [Concomitant]
     Active Substance: ALPRAZOLAM
     Route: 065
  12. INEXIUM [Concomitant]
     Active Substance: ESOMEPRAZOLE
     Route: 065
  13. TANGANIL [Concomitant]
     Active Substance: ACETYLLEUCINE
     Route: 065
  14. HEMIGOXINE NATIVELLE [Concomitant]
     Active Substance: DIGOXIN
     Dosage: 0.125 MG, TABLET
     Route: 048
  15. LEVOTHYROXINE. [Concomitant]
     Active Substance: LEVOTHYROXINE
     Route: 065

REACTIONS (1)
  - Dermatitis bullous [Recovered/Resolved]

NARRATIVE: CASE EVENT DATE: 201507
